FAERS Safety Report 5695262-7 (Version None)
Quarter: 2008Q2

REPORT INFORMATION
  Report Type: 
  Country: None (occurrence: None)
  Receive Date: 20080404
  Receipt Date: 20080326
  Transmission Date: 20081010
  Serious: Yes (Disabling)
  Sender: FDA-Public Use
  Company Number: CA-BOEHRINGER INGELHEIM GMBH, GERMANY-2008-CN-00130CN

PATIENT
  Age: 60 Year
  Sex: Male

DRUGS (4)
  1. SPIRIVA [Suspect]
     Indication: CHRONIC OBSTRUCTIVE PULMONARY DISEASE
     Route: 055
     Dates: start: 20080229, end: 20080301
  2. TEMAZEPAM [Concomitant]
  3. SYMBICORT [Concomitant]
  4. PULMICORT [Concomitant]

REACTIONS (1)
  - CHEST PAIN [None]
